FAERS Safety Report 16662595 (Version 2)
Quarter: 2020Q1

REPORT INFORMATION
  Report Type: Spontaneous
  Country: NO (occurrence: NO)
  Receive Date: 20190802
  Receipt Date: 20200129
  Transmission Date: 20200409
  Serious: No
  Sender: FDA-Public Use
  Company Number: NO-EXELIXIS-CABO-19019562

PATIENT

DRUGS (3)
  1. CORTISONE [Concomitant]
     Active Substance: CORTISONE
  2. CABOMETYX [Suspect]
     Active Substance: CABOZANTINIB S-MALATE
     Dosage: UNK
  3. CABOMETYX [Suspect]
     Active Substance: CABOZANTINIB S-MALATE
     Indication: PRODUCT USED FOR UNKNOWN INDICATION
     Dosage: UNK

REACTIONS (2)
  - Musculoskeletal stiffness [Recovered/Resolved]
  - Skin discolouration [Not Recovered/Not Resolved]
